FAERS Safety Report 6386127-6 (Version None)
Quarter: 2009Q4

REPORT INFORMATION
  Report Type: 
  Country: None (occurrence: None)
  Receive Date: 20091002
  Receipt Date: 20081125
  Transmission Date: 20100525
  Serious: No
  Sender: FDA-Public Use
  Company Number: US-ASTRAZENECA-2008UW26399

PATIENT
  Age: 37 Year
  Sex: Female
  Weight: 72.6 kg

DRUGS (2)
  1. ARIMIDEX [Suspect]
     Indication: ENDOMETRIOSIS
     Route: 048
  2. CLARITIN [Concomitant]

REACTIONS (1)
  - LIMB INJURY [None]
